FAERS Safety Report 14898142 (Version 2)
Quarter: 2018Q2

REPORT INFORMATION
  Report Type: Spontaneous
  Country: US (occurrence: US)
  Receive Date: 20180515
  Receipt Date: 20180517
  Transmission Date: 20180711
  Serious: No
  Sender: FDA-Public Use
  Company Number: US-SA-2018SA041996

PATIENT
  Age: 57 Year
  Sex: Female

DRUGS (4)
  1. TOUJEO [Suspect]
     Active Substance: INSULIN GLARGINE
     Indication: TYPE 1 DIABETES MELLITUS
     Dosage: DOSE:50 UNIT(S)
     Route: 051
  2. TOUJEO [Suspect]
     Active Substance: INSULIN GLARGINE
     Indication: TYPE 1 DIABETES MELLITUS
     Dosage: DOSE:50 UNIT(S)
     Route: 051
     Dates: start: 2017
  3. SOLOSTAR [Suspect]
     Active Substance: DEVICE
  4. SOLOSTAR [Suspect]
     Active Substance: DEVICE
     Dates: start: 2017

REACTIONS (4)
  - Fall [Unknown]
  - Hyperglycaemia [Unknown]
  - Hypoglycaemia [Unknown]
  - Dry eye [Not Recovered/Not Resolved]

NARRATIVE: CASE EVENT DATE: 20171220
